FAERS Safety Report 6060577-X (Version None)
Quarter: 2009Q1

REPORT INFORMATION
  Report Type: 
  Country: None (occurrence: None)
  Receive Date: 20090202
  Receipt Date: 20090126
  Transmission Date: 20090719
  Serious: Yes (Hospitalization)
  Sender: FDA-Public Use
  Company Number: US-BRISTOL-MYERS SQUIBB COMPANY-14461412

PATIENT
  Age: 68 Year
  Sex: Male

DRUGS (15)
  1. ORENCIA [Suspect]
     Indication: RHEUMATOID ARTHRITIS
     Dosage: TAKEN 2 WEEKS AGO.1000MG AT 0,2 AND 4 WKS THEN Q4W
     Route: 042
     Dates: start: 20081212
  2. LIPITOR [Concomitant]
     Dosage: EVERY NIGHT
  3. SYNTHROID [Concomitant]
  4. RESTASIS [Concomitant]
  5. ASPIRIN [Concomitant]
  6. NASONEX [Concomitant]
  7. ASTELIN [Concomitant]
  8. M.V.I. [Concomitant]
     Dosage: 1 DOSAGE FORM = 1 TAB
  9. MULTIVITAMIN [Concomitant]
  10. VICODIN [Concomitant]
  11. BACLOFEN [Concomitant]
  12. OXYGEN [Concomitant]
     Dosage: EVERY NIGHT
  13. COZAAR [Concomitant]
     Dosage: 1 DOSAGE FORM= 5/20 MG
  14. PREDNISONE [Concomitant]
  15. DARVOCET-N 100 [Concomitant]

REACTIONS (1)
  - INTESTINAL ISCHAEMIA [None]
